FAERS Safety Report 5590273-4 (Version None)
Quarter: 2008Q1

REPORT INFORMATION
  Report Type: 
  Country: None (occurrence: None)
  Receive Date: 20080109
  Receipt Date: 20080102
  Transmission Date: 20080703
  Serious: Yes (Other)
  Sender: FDA-Public Use
  Company Number: CHPA2008US00441

PATIENT
  Age: 75 Year
  Sex: Female

DRUGS (5)
  1. FERROUS SULFATE TAB [Suspect]
     Indication: ANAEMIA
     Dosage: 160 MG, QD, ORAL
     Route: 048
     Dates: start: 20071102
  2. PLAVIX [Concomitant]
  3. AVANDIA [Concomitant]
  4. OXYCONTIN [Concomitant]
  5. PREVACID [Concomitant]

REACTIONS (2)
  - CONCOMITANT DISEASE AGGRAVATED [None]
  - FAECES DISCOLOURED [None]
